FAERS Safety Report 25976392 (Version 1)
Quarter: 2025Q4

REPORT INFORMATION
  Report Type: Spontaneous
  Country: EU (occurrence: EU)
  Receive Date: 20251029
  Receipt Date: 20251029
  Transmission Date: 20260118
  Serious: Yes (Other)
  Sender: MYLAN
  Company Number: EU-Merck Healthcare KGaA-2025049680

PATIENT
  Age: 61 Year
  Sex: Female

DRUGS (6)
  1. ESOMEPRAZOLE [Suspect]
     Active Substance: ESOMEPRAZOLE
     Indication: Product used for unknown indication
     Dosage: UNK
  2. XANAX [Suspect]
     Active Substance: ALPRAZOLAM
     Indication: Product used for unknown indication
     Dosage: UNK
  3. ESCITALOPRAM [Suspect]
     Active Substance: ESCITALOPRAM OXALATE
     Indication: Product used for unknown indication
     Dosage: UNK
  4. MAGNESIUM [Suspect]
     Active Substance: MAGNESIUM
     Indication: Product used for unknown indication
     Dosage: UNK
  5. METHIMAZOLE [Suspect]
     Active Substance: METHIMAZOLE
     Indication: Hyperthyroidism
     Dosage: 1 DOSAGE FORM, QD (SCORED FILM-COATED TABLET  )
     Dates: start: 202504
  6. METHIMAZOLE [Suspect]
     Active Substance: METHIMAZOLE
     Dosage: UNK UNK, QD (TOOK BETWEEN 1 TABLET TO 1/4 TABLET PER DAY,), SCORED FILM-COATED TABLET
     Dates: end: 20250901

REACTIONS (1)
  - Renal failure [Unknown]
